FAERS Safety Report 6192078-2 (Version None)
Quarter: 2009Q2

REPORT INFORMATION
  Report Type: 
  Country: None (occurrence: None)
  Receive Date: 20090515
  Receipt Date: 20090505
  Transmission Date: 20091009
  Serious: Yes (Hospitalization)
  Sender: FDA-Public Use
  Company Number: FR-ELI_LILLY_AND_COMPANY-FR200905000958

PATIENT
  Age: 72 Year
  Sex: Female

DRUGS (3)
  1. FORTEO [Suspect]
     Indication: OSTEOPOROSIS
     Dosage: 20 UG, DAILY (1/D)
     Dates: start: 20080926
  2. CORTISON [Concomitant]
     Dosage: 7 MG, DAILY (1/D)
  3. CORTISON [Concomitant]
     Dosage: 3 MG, DAILY (1/D)
     Dates: start: 20081201

REACTIONS (2)
  - STENT PLACEMENT [None]
  - WEIGHT DECREASED [None]
